FAERS Safety Report 7642178-2 (Version None)
Quarter: 2011Q3

REPORT INFORMATION
  Report Type: 
  Country: None (occurrence: None)
  Receive Date: 20110728
  Receipt Date: 20110719
  Transmission Date: 20111222
  Serious: Yes (Other)
  Sender: FDA-Public Use
  Company Number: US-CELGENEUS-163-21880-11072132

PATIENT
  Sex: Female
  Weight: 63.56 kg

DRUGS (6)
  1. LUTEIN [Concomitant]
     Route: 065
  2. REVLIMID [Suspect]
     Indication: MYELODYSPLASTIC SYNDROME
     Dosage: 5 MILLIGRAM
     Route: 048
     Dates: start: 20081101
  3. BONIVA [Concomitant]
     Route: 065
  4. LYCOPENE [Concomitant]
     Route: 065
  5. HYDROCODONE BITARTRATE [Concomitant]
     Route: 065
  6. CALCIUM WITH VITAMIN D [Concomitant]
     Route: 065

REACTIONS (1)
  - PATELLA FRACTURE [None]
